FAERS Safety Report 13225762 (Version 2)
Quarter: 2018Q1

REPORT INFORMATION
  Report Type: Other
  Country: US (occurrence: US)
  Receive Date: 20170213
  Receipt Date: 20180130
  Transmission Date: 20180508
  Serious: No
  Sender: FDA-Public Use
  Company Number: US-ACORDA-ACO_133050_2017

PATIENT
  Age: 62 Year
  Sex: Female

DRUGS (3)
  1. AMPYRA [Suspect]
     Active Substance: DALFAMPRIDINE
     Indication: BALANCE DISORDER
  2. AMPYRA [Suspect]
     Active Substance: DALFAMPRIDINE
     Indication: MULTIPLE SCLEROSIS
     Dosage: 10 MG, BID
     Route: 048
     Dates: start: 20160527
  3. AMPYRA [Suspect]
     Active Substance: DALFAMPRIDINE
     Indication: TREMOR

REACTIONS (5)
  - Therapeutic response unexpected [Unknown]
  - Dry eye [Recovered/Resolved]
  - Eye disorder [Not Recovered/Not Resolved]
  - Hypothyroidism [Unknown]
  - Off label use [Unknown]

NARRATIVE: CASE EVENT DATE: 20160901
